FAERS Safety Report 18647236 (Version 1)
Quarter: 2020Q4

REPORT INFORMATION
  Report Type: Spontaneous
  Country: GB (occurrence: GB)
  Receive Date: 20201222
  Receipt Date: 20201222
  Transmission Date: 20210114
  Serious: Yes (Other)
  Sender: FDA-Public Use
  Company Number: GB-AMGEN-GBRSP2020206425

PATIENT
  Age: 71 Year
  Sex: Female

DRUGS (1)
  1. REPATHA [Suspect]
     Active Substance: EVOLOCUMAB
     Indication: DISEASE RISK FACTOR
     Dosage: UNK
     Route: 065
     Dates: start: 2017

REACTIONS (9)
  - Fatigue [Unknown]
  - Asthenia [Unknown]
  - Alopecia [Unknown]
  - Depressed level of consciousness [Unknown]
  - Illness [Unknown]
  - Malaise [Unknown]
  - Disorientation [Unknown]
  - Discomfort [Unknown]
  - Pain [Unknown]
